FAERS Safety Report 26108010 (Version 2)
Quarter: 2025Q4

REPORT INFORMATION
  Report Type: Spontaneous
  Country: GB (occurrence: GB)
  Receive Date: 20251201
  Receipt Date: 20251201
  Transmission Date: 20260118
  Serious: Yes (Hospitalization, Other)
  Sender: TEVA
  Company Number: None

PATIENT
  Age: 85 Year
  Sex: Female

DRUGS (5)
  1. ALENDRONIC ACID [Suspect]
     Active Substance: ALENDRONIC ACID
     Indication: Product used for unknown indication
     Dosage: ONE TO BE TAKEN ON THE SAME DAY EACH WEEK -?HAS NOT BEEN TAKING FOR 3 WEEKS DUE TO DIARRHOEA/COLI...
     Route: 065
  2. ACETAMINOPHEN [Concomitant]
     Active Substance: ACETAMINOPHEN
     Indication: Product used for unknown indication
     Dosage: TWO TO BE TAKEN EVERY 4-6 HOURS UP TO FOUR TIMES A?DAY
  3. Fenbid [Concomitant]
     Indication: Product used for unknown indication
     Dosage: APPLY UP TO THREE TIMES A DAY WHEN REQUIRED;
  4. BISOPROLOL [Concomitant]
     Active Substance: BISOPROLOL
     Indication: Product used for unknown indication
  5. PREDNISOLONE [Concomitant]
     Active Substance: PREDNISOLONE
     Indication: Product used for unknown indication

REACTIONS (3)
  - Atypical femur fracture [Unknown]
  - Colitis [Unknown]
  - Diarrhoea [Unknown]
